FAERS Safety Report 6528455-7 (Version None)
Quarter: 2010Q1

REPORT INFORMATION
  Report Type: 
  Country: None (occurrence: None)
  Receive Date: 20100106
  Receipt Date: 20091228
  Transmission Date: 20100710
  Serious: Yes (Life-Threatening)
  Sender: FDA-Public Use
  Company Number: B0620934A

PATIENT
  Sex: Female

DRUGS (7)
  1. SALBUMOL [Suspect]
     Indication: TOCOLYSIS
     Dosage: 4MGH PER DAY
     Route: 042
     Dates: start: 20090507, end: 20090509
  2. SALBUMOL [Suspect]
     Dosage: 1MG TWICE PER DAY
     Route: 054
     Dates: start: 20090509, end: 20090510
  3. AUGMENTIN [Suspect]
     Indication: INFECTION
     Dosage: 1GR THREE TIMES PER DAY
     Route: 048
     Dates: start: 20090501
  4. AMOXICILLIN SODIUM + CLAVULANIC ACID [Suspect]
     Indication: INFECTION
     Dosage: 2GR THREE TIMES PER DAY
     Route: 042
     Dates: start: 20090501
  5. HEPARIN [Suspect]
     Indication: DRUG EXPOSURE DURING PREGNANCY
     Route: 065
     Dates: start: 20090501
  6. MACROLIDE [Suspect]
     Indication: DRUG EXPOSURE DURING PREGNANCY
     Dosage: 1GR THREE TIMES PER DAY
     Route: 065
     Dates: start: 20090501
  7. ERYTHROMYCIN [Suspect]
     Indication: DRUG EXPOSURE DURING PREGNANCY
     Route: 048
     Dates: start: 20090501

REACTIONS (10)
  - CARDIOMYOPATHY [None]
  - CHEST DISCOMFORT [None]
  - DILATATION VENTRICULAR [None]
  - DRUG EXPOSURE DURING PREGNANCY [None]
  - DYSPNOEA [None]
  - HEPATOMEGALY [None]
  - INFLAMMATION [None]
  - PLEURAL EFFUSION [None]
  - PULMONARY ARTERIAL HYPERTENSION [None]
  - TRICUSPID VALVE INCOMPETENCE [None]
